FAERS Safety Report 8317178-X (Version None)
Quarter: 2012Q2

REPORT INFORMATION
  Report Type: 
  Country: None (occurrence: None)
  Receive Date: 20120427
  Receipt Date: 20120421
  Transmission Date: 20120825
  Serious: Yes (Other)
  Sender: FDA-Public Use
  Company Number: PHHY2012MX034949

PATIENT
  Sex: Female
  Weight: 78 kg

DRUGS (3)
  1. AMROSIQUE [Concomitant]
     Indication: FEELING OF RELAXATION
     Dosage: UNK
  2. EXFORGE [Suspect]
     Indication: HYPERTENSION
     Dosage: 1 TABLET (160/5MG) BY DAY
     Dates: start: 20120110, end: 20120401
  3. PSEUDOEPHEDRINE HCL [Concomitant]
     Dosage: UNK UKN, PRN

REACTIONS (2)
  - FALL [None]
  - ANKLE FRACTURE [None]
